FAERS Safety Report 11769862 (Version 1)
Quarter: 2015Q4

REPORT INFORMATION
  Report Type: Spontaneous
  Country: TR (occurrence: TR)
  Receive Date: 20151123
  Receipt Date: 20151123
  Transmission Date: 20160304
  Serious: Yes (Hospitalization)
  Sender: FDA-Public Use
  Company Number: TR-PFIZER INC-2015228835

PATIENT
  Age: 64 Year
  Sex: Female

DRUGS (3)
  1. LYRICA [Suspect]
     Active Substance: PREGABALIN
     Dosage: UNK
     Dates: start: 201510, end: 201511
  2. ENBREL [Suspect]
     Active Substance: ETANERCEPT
     Indication: ANKYLOSING SPONDYLITIS
     Dosage: 50 MG, WEEKLY
     Route: 058
     Dates: start: 20141110
  3. LYRICA [Suspect]
     Active Substance: PREGABALIN
     Dosage: UNK

REACTIONS (6)
  - Cardiac disorder [Recovered/Resolved]
  - Burning sensation [Recovered/Resolved]
  - Ear disorder [Recovered/Resolved]
  - Renal pain [Not Recovered/Not Resolved]
  - Muscle spasms [Recovered/Resolved]
  - Back pain [Not Recovered/Not Resolved]

NARRATIVE: CASE EVENT DATE: 201506
